FAERS Safety Report 16618923 (Version 2)
Quarter: 2019Q3

REPORT INFORMATION
  Report Type: Spontaneous
  Country: JP (occurrence: JP)
  Receive Date: 20190723
  Receipt Date: 20190723
  Transmission Date: 20191004
  Serious: Yes (Other)
  Sender: FDA-Public Use
  Company Number: PHJP2019JP009567

PATIENT
  Age: 65 Year
  Sex: Female

DRUGS (1)
  1. DICLOFENAC [Suspect]
     Active Substance: DICLOFENAC
     Indication: BACK PAIN
     Dosage: UNK
     Route: 065

REACTIONS (5)
  - Shock [Unknown]
  - Upper gastrointestinal haemorrhage [Unknown]
  - Cold sweat [Unknown]
  - Faeces discoloured [Unknown]
  - Stress cardiomyopathy [Unknown]
